FAERS Safety Report 25795868 (Version 1)
Quarter: 2025Q3

REPORT INFORMATION
  Report Type: Spontaneous
  Country: US (occurrence: None)
  Receive Date: 20250911
  Receipt Date: 20250911
  Transmission Date: 20251020
  Serious: Yes (Hospitalization, Disabling)
  Sender: FDA-CTU
  Company Number: None

PATIENT
  Age: 88 Year
  Sex: Male
  Weight: 85.3 kg

DRUGS (5)
  1. ACORAMIDIS [Suspect]
     Active Substance: ACORAMIDIS
     Indication: Cardiac amyloidosis
     Dosage: FREQUENCY : TWICE A DAY;?
     Route: 048
     Dates: start: 20250801, end: 20250911
  2. METFORMIN [Concomitant]
     Active Substance: METFORMIN HYDROCHLORIDE
  3. LOSARTAN [Concomitant]
     Active Substance: LOSARTAN
  4. CARVEDILOL [Concomitant]
     Active Substance: CARVEDILOL
  5. ALLOPURINOL [Concomitant]
     Active Substance: ALLOPURINOL

REACTIONS (7)
  - Asthenia [None]
  - Muscle spasms [None]
  - Sciatica [None]
  - Hyperkalaemia [None]
  - Hypertransaminasaemia [None]
  - Haemodialysis [None]
  - Acute kidney injury [None]

NARRATIVE: CASE EVENT DATE: 20250910
